FAERS Safety Report 16088039 (Version 1)
Quarter: 2019Q1

REPORT INFORMATION
  Report Type: Spontaneous
  Country: MX (occurrence: MX)
  Receive Date: 20190319
  Receipt Date: 20190319
  Transmission Date: 20190418
  Serious: Yes (Hospitalization, Other)
  Sender: FDA-Public Use
  Company Number: MX-AUROBINDO-AUR-APL-2019-015003

PATIENT
  Age: 37 Year
  Sex: Male

DRUGS (1)
  1. TRAMADOL. [Suspect]
     Active Substance: TRAMADOL
     Indication: BACK PAIN
     Dosage: UNK UNK, DAILY
     Route: 042

REACTIONS (12)
  - Pyrexia [Recovering/Resolving]
  - Respiratory failure [Recovering/Resolving]
  - Disorientation [Recovering/Resolving]
  - Haemodynamic instability [Recovering/Resolving]
  - Depressed level of consciousness [Recovering/Resolving]
  - Endocarditis staphylococcal [Unknown]
  - Meningitis bacterial [Unknown]
  - Cardiac murmur [Recovering/Resolving]
  - Osler^s nodes [Recovering/Resolving]
  - Janeway lesion [Recovering/Resolving]
  - Aphasia [Recovering/Resolving]
  - Somnolence [Recovering/Resolving]
